FAERS Safety Report 5482877-4 (Version None)
Quarter: 2007Q4

REPORT INFORMATION
  Report Type: 
  Country: None (occurrence: None)
  Receive Date: 20071011
  Receipt Date: 20071002
  Transmission Date: 20080405
  Serious: Yes (Other)
  Sender: FDA-Public Use
  Company Number: US-PFIZER INC-2007083344

PATIENT
  Sex: Female
  Weight: 68.181 kg

DRUGS (4)
  1. CHANTIX [Suspect]
     Indication: SMOKING CESSATION THERAPY
     Route: 048
     Dates: start: 20071001, end: 20071002
  2. ALL OTHER THERAPEUTIC PRODUCTS [Concomitant]
     Route: 048
  3. ANTIDEPRESSANTS [Concomitant]
     Route: 048
  4. RISPERDAL [Concomitant]
     Route: 048

REACTIONS (7)
  - ANGER [None]
  - BIPOLAR DISORDER [None]
  - DEPRESSION [None]
  - HEADACHE [None]
  - MOOD SWINGS [None]
  - NAUSEA [None]
  - PRURITUS [None]
